FAERS Safety Report 6917196-X (Version None)
Quarter: 2010Q3

REPORT INFORMATION
  Report Type: 
  Country: None (occurrence: None)
  Receive Date: 20100810
  Receipt Date: 20071129
  Transmission Date: 20110219
  Serious: Yes (Other)
  Sender: FDA-Public Use
  Company Number: US-PFIZER INC-2007101555

PATIENT
  Sex: Female

DRUGS (1)
  1. CELEBREX [Suspect]
     Indication: ARTHRALGIA
     Route: 048
     Dates: start: 19990101

REACTIONS (5)
  - ANXIETY [None]
  - ASTHENIA [None]
  - DIARRHOEA [None]
  - HEART RATE INCREASED [None]
  - MYOCARDIAL INFARCTION [None]
